FAERS Safety Report 8951203 (Version 3)
Quarter: 2013Q1

REPORT INFORMATION
  Report Type: Spontaneous
  Country: JP (occurrence: JP)
  Receive Date: 20121207
  Receipt Date: 20130102
  Transmission Date: 20140127
  Serious: Yes (Life-Threatening)
  Sender: FDA-Public Use
  Company Number: JP-SANOFI-AVENTIS-2012SA087698

PATIENT
  Age: 75 Year
  Sex: Female
  Weight: 48 kg

DRUGS (12)
  1. ELPLAT [Suspect]
     Indication: RECTAL CANCER
     Dosage: DOSE: 85.9MG/M2
     Route: 041
     Dates: start: 20121116, end: 20121116
  2. CALCIUM LEVOFOLINATE [Suspect]
     Indication: RECTAL CANCER
     Dosage: DOSE: 201.6MG/M2
     Route: 041
     Dates: start: 20121116, end: 20121116
  3. 5-FU [Suspect]
     Indication: RECTAL CANCER
     Dosage: DOSE: 403.3 MG/M2
     Route: 040
     Dates: start: 20121116, end: 20121116
  4. 5-FU [Suspect]
     Indication: RECTAL CANCER
     Dosage: DOSE: 2419.7 MG/M2
     Route: 041
     Dates: start: 20121116, end: 20121116
  5. DEXAMETHASONE SODIUM PHOSPHATE [Concomitant]
     Dates: start: 20121116, end: 20121116
  6. ALOXI [Concomitant]
     Dates: start: 20121116, end: 20121116
  7. VITAMEDIN S [Concomitant]
     Dates: start: 20121118, end: 20121121
  8. GLUCOSE [Concomitant]
     Dates: start: 20121118, end: 20121119
  9. AMINOLEBAN [Concomitant]
     Dates: start: 20121118, end: 20121123
  10. LACTEC [Concomitant]
     Dates: start: 20121118, end: 20121118
  11. SOLDEM 1 [Concomitant]
     Dates: start: 20121118, end: 20121121
  12. SOLDEM 3A [Concomitant]
     Dates: start: 20121119, end: 20121121

REACTIONS (2)
  - Hepatic failure [Unknown]
  - Hyperammonaemia [Recovered/Resolved]
